FAERS Safety Report 5621671-8 (Version None)
Quarter: 2008Q1

REPORT INFORMATION
  Report Type: 
  Country: None (occurrence: None)
  Receive Date: 20080131
  Receipt Date: 20080118
  Transmission Date: 20080703
  Serious: Yes (Hospitalization, Disabling)
  Sender: FDA-Public Use
  Company Number: WAES 0801BEL00017

PATIENT
  Age: 83 Year
  Sex: Female

DRUGS (17)
  1. FOSAMAX [Suspect]
     Indication: OSTEOPOROSIS
     Dosage: 10 MG/DAILY PO
     Route: 048
     Dates: start: 20041020, end: 20071016
  2. ZOCOR [Concomitant]
  3. ACETAMINOPHEN [Concomitant]
  4. ASPIRIN [Concomitant]
  5. BETAHISTINE HYDROCHLORIDE [Concomitant]
  6. CALCIUM CARBONATE [Concomitant]
  7. ERGOCALCIFEROL [Concomitant]
  8. FOLIC ACID [Concomitant]
  9. LORMETAZEPAM [Concomitant]
  10. METFORMIN HCL [Concomitant]
  11. METHOTREXATE [Concomitant]
  12. OMEPRAZOLE [Concomitant]
  13. PLACEBO (UNSPECIFIED) [Concomitant]
  14. REPAGLINIDE [Concomitant]
  15. SOTALOL HYDROCHLORIDE [Concomitant]
  16. SPIRONOLACTONE [Concomitant]
  17. TRAMADOL HCL [Concomitant]

REACTIONS (2)
  - LUMBAR VERTEBRAL FRACTURE [None]
  - THORACIC VERTEBRAL FRACTURE [None]
